FAERS Safety Report 11130677 (Version 1)
Quarter: 2015Q2

REPORT INFORMATION
  Report Type: Spontaneous
  Country: US (occurrence: None)
  Receive Date: 20150521
  Receipt Date: 20150521
  Transmission Date: 20150821
  Serious: Yes (Disabling, Other)
  Sender: FDA-Public Use
  Company Number: None

PATIENT
  Age: 89 Year
  Sex: Female
  Weight: 58.97 kg

DRUGS (4)
  1. ATOVAQUONE-PROGUANIL [Suspect]
     Active Substance: ATOVAQUONE\PROGUANIL HYDROCHLORIDE
     Indication: FOREIGN TRAVEL
     Dosage: 1 PILL
     Route: 048
     Dates: start: 20150415, end: 20150424
  2. TUMS [Concomitant]
     Active Substance: CALCIUM CARBONATE
  3. MULTIVITAMINS [Concomitant]
     Active Substance: VITAMINS
  4. BABY ASPIRIN [Concomitant]
     Active Substance: ASPIRIN

REACTIONS (17)
  - Feeling hot [None]
  - Fall [None]
  - Head injury [None]
  - Back injury [None]
  - Oropharyngeal pain [None]
  - Skin abrasion [None]
  - Hypophagia [None]
  - Cough [None]
  - Joint injury [None]
  - Localised infection [None]
  - Decreased appetite [None]
  - Feeling abnormal [None]
  - Asthenia [None]
  - Headache [None]
  - Dizziness [None]
  - Pyrexia [None]
  - Skin haemorrhage [None]
